FAERS Safety Report 18135968 (Version 1)
Quarter: 2020Q3

REPORT INFORMATION
  Report Type: Spontaneous
  Country: ES (occurrence: ES)
  Receive Date: 20200811
  Receipt Date: 20200811
  Transmission Date: 20201103
  Serious: Yes (Other)
  Sender: FDA-Public Use
  Company Number: ES-PAIPHARMA-2020-ES-000093

PATIENT
  Age: 66 Year
  Sex: Male

DRUGS (5)
  1. HALOPERIDOL (HALLOPERIDOL) [Suspect]
     Active Substance: HALOPERIDOL
     Indication: DELIRIUM
     Dosage: 1 MG TWICE DAILY
  2. LOPINAVIR + RITONAVIR 133.3/ 33.3 MG [Suspect]
     Active Substance: LOPINAVIR\RITONAVIR
     Indication: COVID-19
     Dosage: 400MG/100MG TWICE DAILY
  3. DULOXETINE. [Suspect]
     Active Substance: DULOXETINE
     Indication: PRODUCT USED FOR UNKNOWN INDICATION
     Dosage: 120 MG DAILY
  4. HYDROXYCHLOROQUINE [Concomitant]
     Active Substance: HYDROXYCHLOROQUINE
     Dosage: 200 MG TWICE DAILY
  5. LITHIUM. [Suspect]
     Active Substance: LITHIUM
     Indication: PRODUCT USED FOR UNKNOWN INDICATION
     Dosage: 800 MG DAILY

REACTIONS (1)
  - Serotonin syndrome [Unknown]
